FAERS Safety Report 11627787 (Version 1)
Quarter: 2015Q4

REPORT INFORMATION
  Report Type: Spontaneous
  Country: US (occurrence: US)
  Receive Date: 20151014
  Receipt Date: 20151014
  Transmission Date: 20160304
  Serious: No
  Sender: FDA-Public Use
  Company Number: US-SUN PHARMACEUTICAL INDUSTRIES LTD-2014US-87417

PATIENT
  Age: 35 Year
  Sex: Female

DRUGS (1)
  1. LORATADINE AND PSEUDOEPHEDRINE [Suspect]
     Active Substance: LORATADINE\PSEUDOEPHEDRINE SULFATE
     Indication: SEASONAL ALLERGY
     Dosage: UNK UNK, DAILY
     Route: 065
     Dates: start: 20140905

REACTIONS (1)
  - Drug ineffective [Unknown]
